FAERS Safety Report 15715295 (Version 1)
Quarter: 2018Q4

REPORT INFORMATION
  Report Type: Spontaneous
  Country: JP (occurrence: JP)
  Receive Date: 20181212
  Receipt Date: 20181212
  Transmission Date: 20190205
  Serious: Yes (Other)
  Sender: FDA-Public Use
  Company Number: JP-SA-2018SA306949

PATIENT
  Age: 82 Year
  Sex: Male

DRUGS (7)
  1. LANTUS SOLOSTAR [Suspect]
     Active Substance: INSULIN GLARGINE
     Indication: DIABETES MELLITUS MANAGEMENT
     Dosage: 32 UNITS
     Route: 058
     Dates: start: 2018, end: 2018
  2. LANTUS SOLOSTAR [Suspect]
     Active Substance: INSULIN GLARGINE
     Dosage: UNK
     Route: 058
     Dates: start: 2017
  3. INSULIN ASPART [Concomitant]
     Active Substance: INSULIN ASPART
     Dosage: 10 U (MORNING), 12 U (NOON), 18 U (EVENING)
     Route: 058
     Dates: start: 2017
  4. LANTUS SOLOSTAR [Suspect]
     Active Substance: INSULIN GLARGINE
     Dosage: UNK
     Route: 058
     Dates: start: 2008
  5. INSULIN ASPART [Concomitant]
     Active Substance: INSULIN ASPART
     Dosage: TOTAL DAILY DOSE, 16 U
     Route: 058
     Dates: start: 2018
  6. LANTUS SOLOSTAR [Suspect]
     Active Substance: INSULIN GLARGINE
     Dosage: UNK
     Route: 058
     Dates: start: 2018
  7. INSULIN ASPART [Concomitant]
     Active Substance: INSULIN ASPART
     Indication: DIABETES MELLITUS MANAGEMENT
     Dosage: 12 U (MORNING), 18 U (NOON), 22 U (EVENING)
     Route: 058
     Dates: start: 2018, end: 2018

REACTIONS (2)
  - Amyloidosis [Unknown]
  - Hyperplasia [Unknown]

NARRATIVE: CASE EVENT DATE: 2018
